FAERS Safety Report 7250304-2 (Version None)
Quarter: 2011Q1

REPORT INFORMATION
  Report Type: 
  Country: None (occurrence: None)
  Receive Date: 20110128
  Receipt Date: 20110121
  Transmission Date: 20110831
  Serious: Yes (Other)
  Sender: FDA-Public Use
  Company Number: BR-SANOFI-AVENTIS-2011SA004465

PATIENT
  Sex: Female
  Weight: 82 kg

DRUGS (9)
  1. LOTAR [Concomitant]
     Indication: HYPERTENSION
     Route: 048
     Dates: start: 20090101
  2. VALPROATE SODIUM/VALPROIC ACID [Concomitant]
     Indication: INSOMNIA
     Route: 048
  3. LANTUS [Suspect]
     Indication: TYPE 2 DIABETES MELLITUS
     Dosage: MORNING (FASTING)
     Route: 058
  4. SOLOSTAR [Suspect]
  5. APIDRA [Suspect]
     Indication: TYPE 2 DIABETES MELLITUS
     Dosage: ACCORDING TO GLYCEMIA LEVEL
     Route: 058
  6. AUTOPEN 24 [Suspect]
  7. CILOSTAZOL [Concomitant]
     Indication: THROMBOSIS PROPHYLAXIS
     Route: 048
     Dates: start: 20090101
  8. ISORDIL [Concomitant]
     Indication: ANGINA PECTORIS
     Route: 048
  9. SIMVASTATIN [Concomitant]
     Route: 048
     Dates: start: 20090101

REACTIONS (2)
  - CATARACT [None]
  - CONDITION AGGRAVATED [None]
